FAERS Safety Report 4686928-6 (Version None)
Quarter: 2005Q2

REPORT INFORMATION
  Report Type: 
  Country: None (occurrence: None)
  Receive Date: 20050608
  Receipt Date: 20050526
  Transmission Date: 20051028
  Serious: Yes (Hospitalization)
  Sender: FDA-Public Use
  Company Number: HQWYE005027MAY05

PATIENT
  Age: 60 Year
  Sex: Male

DRUGS (2)
  1. AMIODARONE (AMIODARONE, TABLET) [Suspect]
     Dosage: 200 MG 1X PER 1 DAY
     Route: 048
     Dates: start: 20050401
  2. WARFARIN (WARFARIN) [Concomitant]

REACTIONS (10)
  - BLOOD THYROID STIMULATING HORMONE DECREASED [None]
  - DECREASED APPETITE [None]
  - DYSPNOEA [None]
  - HEART RATE INCREASED [None]
  - LETHARGY [None]
  - NAUSEA [None]
  - PALPITATIONS [None]
  - THYROID FUNCTION TEST ABNORMAL [None]
  - THYROXINE FREE DECREASED [None]
  - TRI-IODOTHYRONINE DECREASED [None]
